FAERS Safety Report 7388665-6 (Version None)
Quarter: 2011Q2

REPORT INFORMATION
  Report Type: 
  Country: None (occurrence: None)
  Receive Date: 20110401
  Receipt Date: 20110328
  Transmission Date: 20111010
  Serious: Yes (Hospitalization)
  Sender: FDA-Public Use
  Company Number: GB-ABBOTT-11P-167-0714759-00

PATIENT
  Age: 27 Year
  Sex: Female

DRUGS (5)
  1. LANTUS [Concomitant]
     Indication: PRODUCT USED FOR UNKNOWN INDICATION
  2. VALPROATE SODIUM [Suspect]
     Indication: MOOD SWINGS
     Route: 048
     Dates: start: 20110120, end: 20110127
  3. DICLOFENAC SODIUM [Concomitant]
     Indication: PRODUCT USED FOR UNKNOWN INDICATION
     Dates: start: 20101214
  4. NOVORAPID [Concomitant]
     Indication: PRODUCT USED FOR UNKNOWN INDICATION
  5. VALPROATE SODIUM [Suspect]
     Route: 048
     Dates: start: 20110127, end: 20110202

REACTIONS (1)
  - DIABETIC KETOACIDOSIS [None]
